FAERS Safety Report 4403963-3 (Version None)
Quarter: 2004Q3

REPORT INFORMATION
  Report Type: 
  Country: None (occurrence: None)
  Receive Date: 20040719
  Receipt Date: 20040706
  Transmission Date: 20050211
  Serious: Yes (Death, Hospitalization)
  Sender: FDA-Public Use
  Company Number: 2004-BP-05330BR

PATIENT
  Age: 85 Year
  Sex: Male

DRUGS (6)
  1. SPIRIVA [Suspect]
     Indication: CHRONIC OBSTRUCTIVE AIRWAYS DISEASE
     Dosage: (18 MCG, 1 KAI OAD) IH
     Dates: end: 20031210
  2. FUROSEMIDE [Concomitant]
  3. ZOLOFT [Concomitant]
  4. FORASEQ [Concomitant]
  5. BAMIFIX (BAMIFYLLINE HYDROCHLORIDE) [Concomitant]
  6. OMEPRAZOLE [Concomitant]

REACTIONS (1)
  - SURGERY [None]
